FAERS Safety Report 13588920 (Version 1)
Quarter: 2017Q2

REPORT INFORMATION
  Report Type: Spontaneous
  Country: US (occurrence: US)
  Receive Date: 20170529
  Receipt Date: 20170529
  Transmission Date: 20170830
  Serious: No
  Sender: FDA-Public Use
  Company Number: US-ALVOGEN-2016-ALVOGEN-025447

PATIENT
  Age: 78 Year
  Sex: Female

DRUGS (1)
  1. LIDEX [Suspect]
     Active Substance: FLUOCINONIDE
     Indication: ALOPECIA AREATA
     Route: 061

REACTIONS (4)
  - Accidental exposure to product [Recovered/Resolved]
  - Vision blurred [Recovered/Resolved]
  - Ocular hyperaemia [Recovered/Resolved]
  - Eye burns [Recovered/Resolved]

NARRATIVE: CASE EVENT DATE: 20160506
